FAERS Safety Report 9221574 (Version 1)
Quarter: 2013Q1

REPORT INFORMATION
  Report Type: Spontaneous
  Country: US (occurrence: None)
  Receive Date: 20120831
  Receipt Date: 20120831
  Transmission Date: 20140127
  Serious: Yes (Other)
  Sender: FDA-Public Use
  Company Number: 1000029874

PATIENT
  Sex: Male

DRUGS (1)
  1. DALIRESP [Suspect]
     Dosage: STOPPED

REACTIONS (1)
  - Suicidal ideation [None]
